FAERS Safety Report 11102081 (Version 1)
Quarter: 2015Q2

REPORT INFORMATION
  Report Type: Spontaneous
  Country: US (occurrence: US)
  Receive Date: 20150511
  Receipt Date: 20150511
  Transmission Date: 20150821
  Serious: Yes (Other)
  Sender: FDA-Public Use
  Company Number: US-CIPLA LTD.-2015US03577

PATIENT

DRUGS (5)
  1. FOLIC ACID. [Concomitant]
     Active Substance: FOLIC ACID
     Route: 065
  2. CARBOPLATIN. [Suspect]
     Active Substance: CARBOPLATIN
     Dosage: AUC 6 ON DAY 1 AS INDUCTION THERAPY FOR FOUR 21-DAY CYCLES
     Route: 065
  3. PEMETREXED [Suspect]
     Active Substance: PEMETREXED
     Dosage: 500 MG/M2 ON DAY 1 AS INDUCTION THERAPY FOR FOUR 21-DAY CYCLES FOLLOWED BY MAINTENANCE THERAPY
     Route: 042
  4. VITAMIN SUPPLEMENTATION [Concomitant]
     Route: 065
  5. BEVACIZUMAB [Suspect]
     Active Substance: BEVACIZUMAB
     Dosage: 15 MG/KG ON DAY 1 AS INDUCTION THERAPY FOR FOUR 21-DAY CYCLES FOLLOWED BY MAINTENANCE THERAPY
     Route: 065

REACTIONS (1)
  - Pulmonary haemorrhage [Unknown]
